FAERS Safety Report 20796649 (Version 1)
Quarter: 2022Q2

REPORT INFORMATION
  Report Type: Spontaneous
  Country: CA (occurrence: CA)
  Receive Date: 20220506
  Receipt Date: 20220506
  Transmission Date: 20220721
  Serious: Yes (Other)
  Sender: FDA-Public Use
  Company Number: CA-PFIZER INC-202200639878

PATIENT
  Age: 61 Year
  Sex: Male
  Weight: 73.3 kg

DRUGS (2)
  1. VYNDAQEL [Suspect]
     Active Substance: TAFAMIDIS MEGLUMINE
     Indication: Amyloidosis senile
     Dosage: 1 DF
     Route: 048
     Dates: start: 201906, end: 2021
  2. VYNDAQEL [Suspect]
     Active Substance: TAFAMIDIS MEGLUMINE
     Indication: Cardiomyopathy
     Dosage: 80 MG, 1X/DAY
     Route: 048
     Dates: start: 2021

REACTIONS (20)
  - Left ventricular hypertrophy [Unknown]
  - Mitral valve thickening [Unknown]
  - Mitral valve incompetence [Unknown]
  - Tricuspid valve incompetence [Unknown]
  - Pulmonary valve incompetence [Unknown]
  - Pericardial effusion [Unknown]
  - Ventricular hypokinesia [Unknown]
  - Ventricular septal defect [Unknown]
  - Ejection fraction decreased [Unknown]
  - Dilatation ventricular [Unknown]
  - Left ventricular dysfunction [Unknown]
  - Right ventricular enlargement [Unknown]
  - Right ventricular systolic pressure decreased [Unknown]
  - Aortic valve thickening [Unknown]
  - Bicuspid aortic valve [Unknown]
  - Left atrial dilatation [Unknown]
  - Right atrial dilatation [Unknown]
  - Inferior vena cava dilatation [Unknown]
  - Right ventricular dysfunction [Unknown]
  - Ventricular internal diameter abnormal [Unknown]

NARRATIVE: CASE EVENT DATE: 20210825
